FAERS Safety Report 7599548-0 (Version None)
Quarter: 2011Q3

REPORT INFORMATION
  Report Type: 
  Country: None (occurrence: None)
  Receive Date: 20110711
  Receipt Date: 20110705
  Transmission Date: 20111222
  Serious: Yes (Other)
  Sender: FDA-Public Use
  Company Number: BR-BRISTOL-MYERS SQUIBB COMPANY-15884836

PATIENT
  Age: 6 Decade

DRUGS (1)
  1. SPRYCEL [Suspect]
     Indication: CHRONIC MYELOID LEUKAEMIA
     Dosage: THERAPY FROM:AROUND 1 YEAR AGO RESTARTED AT LOWER DOSE AND AGAIN INTERRUPTED
     Route: 048

REACTIONS (2)
  - PLEURAL EFFUSION [None]
  - RESPIRATORY TRACT CONGESTION [None]
